FAERS Safety Report 8884535 (Version 2)
Quarter: 2013Q2

REPORT INFORMATION
  Report Type: Spontaneous
  Country: US (occurrence: US)
  Receive Date: 20121104
  Receipt Date: 20130617
  Transmission Date: 20140414
  Serious: No
  Sender: FDA-Public Use
  Company Number: US-ASTRAZENECA-2012SE81334

PATIENT
  Age: 51 Year
  Sex: Male

DRUGS (2)
  1. SEROQUEL XR [Suspect]
     Route: 048
  2. VIMOVO [Concomitant]

REACTIONS (4)
  - Rheumatoid arthritis [Unknown]
  - Depression [Unknown]
  - Crying [Unknown]
  - Drug dose omission [Unknown]
